FAERS Safety Report 4676557-2 (Version None)
Quarter: 2005Q2

REPORT INFORMATION
  Report Type: 
  Country: None (occurrence: None)
  Receive Date: 20050526
  Receipt Date: 20050526
  Transmission Date: 20051028
  Serious: No
  Sender: FDA-Public Use
  Company Number: None

PATIENT
  Sex: Male
  Weight: 58 kg

DRUGS (2)
  1. CISPLATIN [Suspect]
     Dates: start: 20050224
  2. RADIATION [Suspect]

REACTIONS (3)
  - ELECTROLYTE IMBALANCE [None]
  - HYPERCALCAEMIA [None]
  - HYPERKALAEMIA [None]
